FAERS Safety Report 4943630-0 (Version None)
Quarter: 2006Q1

REPORT INFORMATION
  Report Type: 
  Country: None (occurrence: None)
  Receive Date: 20060310
  Receipt Date: 20060227
  Transmission Date: 20060701
  Serious: Yes (Other)
  Sender: FDA-Public Use
  Company Number: B0413398A

PATIENT
  Age: 49 Year
  Sex: Female

DRUGS (4)
  1. VALTREX [Suspect]
     Indication: HERPES ZOSTER
     Dosage: 1000 MG/ THREE TIMES PER DAY/ ORAL
     Route: 048
     Dates: start: 20060216, end: 20060218
  2. LOXOPROFEN TABLET (LOXOPROFEN) [Suspect]
     Indication: HERPES ZOSTER
     Dosage: 60 MG / THREE TIMES PER DAY/ ORAL
     Route: 048
     Dates: start: 20060216, end: 20060219
  3. TEPRENONE [Concomitant]
  4. CYANOCOBALAMIN [Concomitant]

REACTIONS (3)
  - FACE OEDEMA [None]
  - OEDEMA PERIPHERAL [None]
  - YELLOW SKIN [None]
